FAERS Safety Report 4417791-6 (Version None)
Quarter: 2004Q2

REPORT INFORMATION
  Report Type: 
  Country: None (occurrence: None)
  Receive Date: 20040621
  Receipt Date: 20040511
  Transmission Date: 20050107
  Serious: No
  Sender: FDA-Public Use
  Company Number: PHEH2004US05245

PATIENT
  Age: 44 Year
  Sex: Female

DRUGS (6)
  1. ZOMETA [Suspect]
     Indication: METASTASES TO BONE
     Dosage: 4 MG, QMO, INTRAVENOUS
     Route: 042
     Dates: start: 20031001
  2. FEMARA [Concomitant]
  3. PROZAC [Concomitant]
  4. ATENOLOL [Concomitant]
  5. FISH OIL [Concomitant]
  6. MULTIVITAMIN [Concomitant]

REACTIONS (3)
  - BLOOD URINE [None]
  - MICTURITION URGENCY [None]
  - POLLAKIURIA [None]
